FAERS Safety Report 6099065-3 (Version None)
Quarter: 2009Q1

REPORT INFORMATION
  Report Type: 
  Country: None (occurrence: None)
  Receive Date: 20090302
  Receipt Date: 20090216
  Transmission Date: 20090719
  Serious: Yes (Hospitalization)
  Sender: FDA-Public Use
  Company Number: JP-ELI_LILLY_AND_COMPANY-JP200902005638

PATIENT
  Age: 79 Year
  Sex: Female
  Weight: 53 kg

DRUGS (1)
  1. ZYPREXA [Suspect]
     Indication: HYPOCHONDRIASIS
     Dosage: UNK, UNK
     Route: 048
     Dates: start: 20070101

REACTIONS (16)
  - BRUXISM [None]
  - DEHYDRATION [None]
  - DYSARTHRIA [None]
  - DYSPHONIA [None]
  - ETHANOL GELATION TEST [None]
  - FIBRIN D DIMER INCREASED [None]
  - FIBRIN DEGRADATION PRODUCTS INCREASED [None]
  - HYPERPARATHYROIDISM [None]
  - MASKED FACIES [None]
  - MUSCLE RIGIDITY [None]
  - PARKINSONIAN GAIT [None]
  - RESTLESSNESS [None]
  - TARDIVE DYSKINESIA [None]
  - THYROIDITIS [None]
  - TORTICOLLIS [None]
  - UPPER GASTROINTESTINAL HAEMORRHAGE [None]
